FAERS Safety Report 6515685-3 (Version None)
Quarter: 2009Q4

REPORT INFORMATION
  Report Type: 
  Country: None (occurrence: None)
  Receive Date: 20091223
  Receipt Date: 20091222
  Transmission Date: 20100525
  Serious: Yes (Other)
  Sender: FDA-Public Use
  Company Number: US-RB-027178-09

PATIENT
  Age: 17 Year
  Sex: Male

DRUGS (1)
  1. DELSYM ADULT ORANGE 5 OZ [Suspect]
     Dosage: INGESTED ENTIRE 5 OZ BOTTLE
     Route: 048
     Dates: start: 20091219

REACTIONS (3)
  - DISORIENTATION [None]
  - FEELING ABNORMAL [None]
  - INTENTIONAL DRUG MISUSE [None]
